FAERS Safety Report 18353714 (Version 1)
Quarter: 2020Q4

REPORT INFORMATION
  Report Type: Spontaneous
  Country: DE (occurrence: DE)
  Receive Date: 20201007
  Receipt Date: 20201007
  Transmission Date: 20210114
  Serious: Yes (Other)
  Sender: FDA-Public Use
  Company Number: DE-SUN PHARMACEUTICAL INDUSTRIES LTD-2020RR-261497

PATIENT

DRUGS (3)
  1. ZOPICLON AL 7.5 [Concomitant]
     Indication: PRODUCT USED FOR UNKNOWN INDICATION
     Dosage: UNK
     Route: 065
     Dates: start: 20160517, end: 20200826
  2. TRELEGY ELLIPTA 92/55/22 30 ED [Concomitant]
     Indication: PRODUCT USED FOR UNKNOWN INDICATION
     Dosage: UNK
     Route: 065
     Dates: start: 20200615, end: 20200826
  3. PANTOPRAZOL BASICS 20 MG MAGENSAFTRESISTENTE TABLETTEN [Suspect]
     Active Substance: PANTOPRAZOLE
     Indication: PRODUCT USED FOR UNKNOWN INDICATION
     Dosage: UNK
     Route: 048
     Dates: start: 20200817, end: 20200826

REACTIONS (4)
  - Product label issue [Unknown]
  - Abdominal pain upper [Unknown]
  - Product contamination [Unknown]
  - Nausea [Unknown]

NARRATIVE: CASE EVENT DATE: 20200817
